FAERS Safety Report 15557367 (Version 4)
Quarter: 2019Q1

REPORT INFORMATION
  Report Type: Spontaneous
  Country: JP (occurrence: JP)
  Receive Date: 20181026
  Receipt Date: 20190314
  Transmission Date: 20190417
  Serious: Yes (Death, Other)
  Sender: FDA-Public Use
  Company Number: JP-AMGEN-JPNSP2018146659

PATIENT
  Age: 78 Year
  Sex: Male
  Weight: 44.5 kg

DRUGS (10)
  1. VECTIBIX [Suspect]
     Active Substance: PANITUMUMAB
     Indication: RECTAL CANCER
     Dosage: 280 MILLIGRAM, Q2WK
     Route: 041
     Dates: start: 20180227, end: 20180327
  2. HIRUDOID [Concomitant]
     Active Substance: GLYCOSAMINOGLYCANS
     Indication: SKIN DISORDER PROPHYLAXIS
     Dosage: UNK
     Route: 062
     Dates: start: 20180227, end: 20180802
  3. LIDOMEX [Concomitant]
     Active Substance: PREDNISOLONE VALERATE ACETATE
     Indication: SKIN DISORDER PROPHYLAXIS
     Dosage: UNK
     Route: 062
     Dates: start: 20180227, end: 20180802
  4. FLUOROURACIL. [Concomitant]
     Active Substance: FLUOROURACIL
     Indication: RECTAL CANCER
     Dosage: UNK
     Route: 040
     Dates: start: 20180227, end: 20180731
  5. FLUOROURACIL. [Concomitant]
     Active Substance: FLUOROURACIL
     Dosage: UNK
     Route: 041
     Dates: start: 20180227, end: 20180731
  6. CALCIUM LEVOFOLINATE [Concomitant]
     Active Substance: LEVOLEUCOVORIN CALCIUM
     Indication: RECTAL CANCER
     Dosage: UNK
     Route: 041
     Dates: start: 20180227, end: 20180731
  7. MINOMYCIN [Concomitant]
     Active Substance: MINOCYCLINE HYDROCHLORIDE
     Indication: SKIN DISORDER PROPHYLAXIS
     Dosage: 2 DOSAGE FORM, BID
     Route: 048
     Dates: start: 20180227, end: 20180802
  8. OXALIPLATIN. [Concomitant]
     Active Substance: OXALIPLATIN
     Indication: RECTAL CANCER
     Dosage: UNK
     Route: 041
     Dates: start: 20180227, end: 20180710
  9. LOCOID [Concomitant]
     Active Substance: HYDROCORTISONE BUTYRATE
     Indication: SKIN DISORDER PROPHYLAXIS
     Dosage: UNK
     Route: 062
     Dates: start: 20180227, end: 20180802
  10. VECTIBIX [Suspect]
     Active Substance: PANITUMUMAB
     Dosage: 220 MILLIGRAM, Q2WK
     Route: 041
     Dates: start: 20180515, end: 20180710

REACTIONS (1)
  - Interstitial lung disease [Fatal]

NARRATIVE: CASE EVENT DATE: 20180802
